FAERS Safety Report 9686598 (Version 1)
Quarter: 2013Q4

REPORT INFORMATION
  Report Type: Spontaneous
  Country: US (occurrence: US)
  Receive Date: 20131113
  Receipt Date: 20131113
  Transmission Date: 20140711
  Serious: Yes (Hospitalization)
  Sender: FDA-Public Use
  Company Number: US-GLAXOSMITHKLINE-A1049450A

PATIENT
  Sex: Female

DRUGS (3)
  1. ADVAIR [Suspect]
     Indication: RESPIRATORY DISORDER
     Route: 055
     Dates: start: 20111101
  2. ANESTHESIA [Suspect]
     Indication: OVARIAN CYSTECTOMY
     Route: 065
     Dates: start: 2011
  3. OXYGEN [Concomitant]
     Indication: RESPIRATORY DISORDER
     Route: 065

REACTIONS (6)
  - Ovarian cystectomy [Unknown]
  - Respiratory failure [Unknown]
  - Oxygen supplementation [Unknown]
  - Adverse drug reaction [Unknown]
  - Hypersensitivity [Unknown]
  - Anaesthetic complication [Unknown]
